FAERS Safety Report 4303435-0 (Version None)
Quarter: 2004Q1

REPORT INFORMATION
  Report Type: 
  Country: None (occurrence: None)
  Receive Date: 20040223
  Receipt Date: 20040212
  Transmission Date: 20041129
  Serious: Yes (Death)
  Sender: FDA-Public Use
  Company Number: 2003UW15895

PATIENT
  Age: 89 Year
  Sex: Male
  Weight: 77.1115 kg

DRUGS (2)
  1. PRILOSEC [Suspect]
     Indication: GASTROOESOPHAGEAL REFLUX DISEASE
     Dosage: 20 MG QD PO
     Route: 048
     Dates: start: 20000813, end: 20000820
  2. METAMUCIL ^PROCTER + GAMBLE^ [Concomitant]

REACTIONS (5)
  - GASTROINTESTINAL HAEMORRHAGE [None]
  - OEDEMA PERIPHERAL [None]
  - PNEUMONIA [None]
  - RENAL FAILURE [None]
  - VASCULITIS [None]
